FAERS Safety Report 4677849-3 (Version None)
Quarter: 2005Q2

REPORT INFORMATION
  Report Type: 
  Country: None (occurrence: None)
  Receive Date: 20050527
  Receipt Date: 20050527
  Transmission Date: 20051028
  Serious: Yes (Life-Threatening, Hospitalization, Disabling)
  Sender: FDA-Public Use
  Company Number: None

PATIENT
  Age: 79 Year
  Sex: Female
  Weight: 49.8957 kg

DRUGS (1)
  1. METOCLOPRAMIDE [Suspect]
     Indication: NAUSEA
     Dosage: 3X DAILY BEFORE MEALS

REACTIONS (7)
  - ASTHENIA [None]
  - DYSSTASIA [None]
  - MASKED FACIES [None]
  - MUSCLE SPASMS [None]
  - PARKINSON'S DISEASE [None]
  - PERIPHERAL COLDNESS [None]
  - TREMOR [None]
